FAERS Safety Report 10241826 (Version 1)
Quarter: 2014Q2

REPORT INFORMATION
  Report Type: Spontaneous
  Country: US (occurrence: US)
  Receive Date: 20140617
  Receipt Date: 20140617
  Transmission Date: 20141212
  Serious: Yes (Hospitalization)
  Sender: FDA-Public Use
  Company Number: US-GLAXOSMITHKLINE-A0939975A

PATIENT
  Age: 58 Year
  Sex: Male

DRUGS (1)
  1. AVANDIA [Suspect]
     Indication: DIABETES MELLITUS
     Dosage: 4MG PER DAY
     Route: 048
     Dates: start: 2000, end: 2001

REACTIONS (5)
  - Cardiac failure congestive [Unknown]
  - Pulmonary oedema [Unknown]
  - Respiratory failure [Unknown]
  - Cardiomyopathy [Unknown]
  - Coronary artery disease [Unknown]
